FAERS Safety Report 18895377 (Version 2)
Quarter: 2021Q1

REPORT INFORMATION
  Report Type: Report from Study
  Country: AT (occurrence: AT)
  Receive Date: 20210215
  Receipt Date: 20210223
  Transmission Date: 20210420
  Serious: Yes (Other)
  Sender: FDA-Public Use
  Company Number: AT-EMD SERONO-9215336

PATIENT
  Sex: Male

DRUGS (1)
  1. SAIZEN [Suspect]
     Active Substance: SOMATROPIN
     Indication: SHORT STATURE
     Dosage: 6MG (5.83MG/AMPOULE)
     Dates: start: 20201214, end: 202101

REACTIONS (3)
  - Testicular appendage torsion [Unknown]
  - Testicular pain [Unknown]
  - Off label use [Unknown]
